FAERS Safety Report 6214166-4 (Version None)
Quarter: 2009Q2

REPORT INFORMATION
  Report Type: 
  Country: None (occurrence: None)
  Receive Date: 20090604
  Receipt Date: 20090602
  Transmission Date: 20091009
  Serious: Yes (Other)
  Sender: FDA-Public Use
  Company Number: US-BRISTOL-MYERS SQUIBB COMPANY-14645741

PATIENT

DRUGS (1)
  1. COUMADIN [Suspect]

REACTIONS (1)
  - CONDITION AGGRAVATED [None]
